FAERS Safety Report 6339869-2 (Version None)
Quarter: 2009Q3

REPORT INFORMATION
  Report Type: 
  Country: None (occurrence: None)
  Receive Date: 20090903
  Receipt Date: 20090824
  Transmission Date: 20100115
  Serious: Yes (Death, Other)
  Sender: FDA-Public Use
  Company Number: CN-PFIZER INC-2009260364

PATIENT
  Age: 76 Year

DRUGS (5)
  1. VFEND [Suspect]
     Indication: FUNGAL INFECTION
     Dosage: EVERY DAY
     Route: 042
     Dates: start: 20090801, end: 20090801
  2. VFEND [Suspect]
     Dosage: EVERY DAY
     Route: 048
     Dates: start: 20090801
  3. MEPEM [Concomitant]
     Dates: start: 20090801, end: 20090801
  4. TEICOPLANIN [Concomitant]
     Dates: start: 20090801, end: 20090801
  5. ALL OTHER THERAPEUTIC PRODUCTS [Concomitant]
     Dates: start: 20090801, end: 20090801

REACTIONS (3)
  - BRAIN OEDEMA [None]
  - MANIA [None]
  - RESPIRATORY FAILURE [None]
